FAERS Safety Report 4661528-2 (Version None)
Quarter: 2005Q2

REPORT INFORMATION
  Report Type: 
  Country: None (occurrence: None)
  Receive Date: 20050502
  Receipt Date: 20050127
  Transmission Date: 20051028
  Serious: No
  Sender: FDA-Public Use
  Company Number: 200510130US

PATIENT
  Age: 68 Year
  Sex: Male

DRUGS (2)
  1. KETEK [Suspect]
     Indication: BRONCHITIS
     Dosage: 400 (2 TABLETS) MG QD PO
     Route: 048
     Dates: start: 20041208, end: 20041208
  2. OTHER MEDICATIONS NOS [Concomitant]

REACTIONS (3)
  - HYPERSENSITIVITY [None]
  - SWELLING FACE [None]
  - URTICARIA GENERALISED [None]
